FAERS Safety Report 15522117 (Version 1)
Quarter: 2018Q4

REPORT INFORMATION
  Report Type: Spontaneous
  Country: US (occurrence: US)
  Receive Date: 20181012
  Receipt Date: 20181012
  Transmission Date: 20190205
  Serious: Yes (Hospitalization)
  Sender: FDA-Public Use
  Company Number: None

PATIENT
  Age: 71 Year
  Sex: Male
  Weight: 104.3 kg

DRUGS (12)
  1. CIPRO [Concomitant]
     Active Substance: CIPROFLOXACIN HYDROCHLORIDE
  2. 5-FU [Suspect]
     Active Substance: FLUOROURACIL
     Indication: PANCREATIC CARCINOMA
     Dosage: 5 DAY/WEEK, IV PUMP
  3. INSULIN (LANTUS) [Concomitant]
  4. XARELTO [Concomitant]
     Active Substance: RIVAROXABAN
  5. GEMCITABINE [Suspect]
     Active Substance: GEMCITABINE\GEMCITABINE HYDROCHLORIDE
     Indication: PANCREATIC CARCINOMA
     Dosage: OTHER FREQUENCY:28 DAY CYCLE;?
     Route: 042
     Dates: start: 20171023, end: 20180924
  6. LOPRESSOR [Concomitant]
     Active Substance: METOPROLOL TARTRATE
  7. ZOCOR [Concomitant]
     Active Substance: SIMVASTATIN
  8. IMODIUM [Concomitant]
     Active Substance: LOPERAMIDE HYDROCHLORIDE
  9. CHEMORADIATION (RADIATION THERAPY) [Suspect]
     Active Substance: RADIATION THERAPY
     Indication: PANCREATIC CARCINOMA
     Dosage: OTHER FREQUENCY:5 DAY/WEEK;EXTERNAL BEAM
     Dates: start: 20180109, end: 20180216
  10. PRILOSEC [Concomitant]
     Active Substance: OMEPRAZOLE MAGNESIUM
  11. GCSF [Concomitant]
     Active Substance: UNSPECIFIED INGREDIENT
  12. METFORMIN [Concomitant]
     Active Substance: METFORMIN HYDROCHLORIDE

REACTIONS (8)
  - Abscess [None]
  - Catheter site swelling [None]
  - Catheter site erythema [None]
  - Catheter site pain [None]
  - Cellulitis [None]
  - Vascular device infection [None]
  - Bacteraemia [None]
  - Sepsis [None]

NARRATIVE: CASE EVENT DATE: 20181007
